FAERS Safety Report 11182207 (Version 4)
Quarter: 2016Q1

REPORT INFORMATION
  Report Type: Report from Study
  Country: US (occurrence: US)
  Receive Date: 20150611
  Receipt Date: 20160226
  Transmission Date: 20160525
  Serious: Yes (Death, Hospitalization, Disabling)
  Sender: FDA-Public Use
  Company Number: US-ACTELION-A-NJ2014-105405

PATIENT
  Age: 41 Year
  Sex: Male

DRUGS (9)
  1. SULFA [Concomitant]
     Active Substance: UNSPECIFIED INGREDIENT
  2. FUROSEMIDE. [Concomitant]
     Active Substance: FUROSEMIDE
     Dosage: UNK
  3. NYSTATIN. [Concomitant]
     Active Substance: NYSTATIN
  4. PREDNISONE. [Concomitant]
     Active Substance: PREDNISONE
     Dosage: UNK
  5. MOXIFLOXACIN. [Concomitant]
     Active Substance: MOXIFLOXACIN
  6. PROLIA [Concomitant]
     Active Substance: DENOSUMAB
  7. MACITENTAN [Suspect]
     Active Substance: MACITENTAN
     Indication: PULMONARY HYPERTENSION
     Dosage: 10 MG, QD
     Route: 048
     Dates: start: 20140307
  8. TYVASO [Suspect]
     Active Substance: TREPROSTINIL
     Indication: PULMONARY ARTERIAL HYPERTENSION
     Dosage: 54 ?G/KG, QID
     Route: 055
     Dates: start: 20010626
  9. PROAIR HFA [Concomitant]
     Active Substance: ALBUTEROL SULFATE

REACTIONS (17)
  - Acute respiratory failure [Not Recovered/Not Resolved]
  - Fluid overload [Unknown]
  - Treatment noncompliance [Not Recovered/Not Resolved]
  - Influenza [Unknown]
  - Pulmonary hypertension [Not Recovered/Not Resolved]
  - Obesity [Not Recovered/Not Resolved]
  - Fluid retention [Not Recovered/Not Resolved]
  - Oral candidiasis [Unknown]
  - Chronic respiratory failure [Not Recovered/Not Resolved]
  - Condition aggravated [Not Recovered/Not Resolved]
  - Cardiac arrest [Fatal]
  - Pulmonary oedema [Recovering/Resolving]
  - Mobility decreased [Unknown]
  - Weight increased [Not Recovered/Not Resolved]
  - Pneumonia [Recovering/Resolving]
  - Back pain [Not Recovered/Not Resolved]
  - Dyspnoea [Recovering/Resolving]

NARRATIVE: CASE EVENT DATE: 20140911
